FAERS Safety Report 5076892-2 (Version None)
Quarter: 2006Q3

REPORT INFORMATION
  Report Type: 
  Country: None (occurrence: None)
  Receive Date: 20060725
  Receipt Date: 20060328
  Transmission Date: 20061208
  Serious: No
  Sender: FDA-Public Use
  Company Number: 200610785BWH

PATIENT
  Age: 74 Year
  Sex: Male
  Weight: 68.0396 kg

DRUGS (16)
  1. NEXAVAR [Suspect]
     Indication: RENAL CELL CARCINOMA STAGE UNSPECIFIED
     Dosage: 400 MG, BID, ORAL
     Route: 048
     Dates: start: 20060124
  2. MEGACE [Concomitant]
  3. PROSCAR [Concomitant]
  4. ZYRTEC [Concomitant]
  5. METOPROLOL TARTRATE [Concomitant]
  6. FUROSEMIDE [Concomitant]
  7. PREVACID [Concomitant]
  8. ZOLOFT [Concomitant]
  9. FLOMAX [Concomitant]
  10. MUCINEX [Concomitant]
  11. COMBIVENT [Concomitant]
  12. ADVAIR DISKUS 100/50 [Concomitant]
  13. NORVASC [Concomitant]
  14. TEGRETOL [Concomitant]
  15. PRAVACHOL [Concomitant]
  16. SINGULAIR [Concomitant]

REACTIONS (4)
  - DIARRHOEA [None]
  - FLUSHING [None]
  - PRURITUS [None]
  - RASH [None]
